FAERS Safety Report 5500435-X (Version None)
Quarter: 2007Q4

REPORT INFORMATION
  Report Type: 
  Country: None (occurrence: None)
  Receive Date: 20071018
  Receipt Date: 20070502
  Transmission Date: 20080405
  Serious: Yes (Other)
  Sender: FDA-Public Use
  Company Number: 2007036914

PATIENT
  Age: 59 Year
  Sex: Male

DRUGS (4)
  1. NEURONTIN [Suspect]
     Indication: BIPOLAR DISORDER
     Dates: start: 19930101
  2. NEURONTIN [Suspect]
     Indication: MENTAL DISORDER
     Dates: start: 19930101
  3. NEURONTIN [Suspect]
     Indication: NEURALGIA
     Dates: start: 19930101
  4. NEURONTIN [Suspect]
     Indication: NEUROPATHY
     Dates: start: 19930101

REACTIONS (2)
  - AMNESIA [None]
  - PAIN [None]
